FAERS Safety Report 7045806-8 (Version None)
Quarter: 2010Q4

REPORT INFORMATION
  Report Type: 
  Country: None (occurrence: None)
  Receive Date: 20101014
  Receipt Date: 20101004
  Transmission Date: 20110411
  Serious: Yes (Other)
  Sender: FDA-Public Use
  Company Number: US-ABBOTT-10P-163-0675640-00

PATIENT
  Sex: Female

DRUGS (1)
  1. LUPRON [Suspect]
     Indication: UTERINE LEIOMYOMA

REACTIONS (3)
  - ARTHRALGIA [None]
  - HYSTERECTOMY [None]
  - UTERINE DISORDER [None]
